FAERS Safety Report 9596482 (Version 1)
Quarter: 2013Q4

REPORT INFORMATION
  Report Type: Spontaneous
  Country: FR (occurrence: FR)
  Receive Date: 20131004
  Receipt Date: 20131004
  Transmission Date: 20140711
  Serious: Yes (Hospitalization)
  Sender: FDA-Public Use
  Company Number: FR-ACTELION-A-CH2013-89021

PATIENT
  Age: 84 Year
  Sex: Male

DRUGS (7)
  1. TRACLEER [Suspect]
     Indication: PULMONARY ARTERIAL HYPERTENSION
     Dosage: 62.5 MG, BID
     Route: 048
     Dates: start: 20130620, end: 20130729
  2. SIMVASTATINE [Concomitant]
  3. FLUINDIONE [Concomitant]
  4. REVATIO [Concomitant]
     Dosage: UNK
     Dates: start: 20130501
  5. PERINDOPRIL [Concomitant]
  6. LASILIX [Concomitant]
     Dosage: 40 MG, QD
  7. TAZOCILLINE [Concomitant]

REACTIONS (1)
  - Hepatocellular injury [Recovered/Resolved]
